FAERS Safety Report 5210913-9 (Version None)
Quarter: 2007Q1

REPORT INFORMATION
  Report Type: 
  Country: None (occurrence: None)
  Receive Date: 20070117
  Receipt Date: 20070109
  Transmission Date: 20070707
  Serious: Yes (Hospitalization)
  Sender: FDA-Public Use
  Company Number: US-BOEHRINGER INGELHEIM GMBH, GERMANY-2007-DE-00172GD

PATIENT
  Age: 62 Year
  Sex: Male

DRUGS (11)
  1. CLONIDINE [Suspect]
     Indication: HYPERTENSION
     Dosage: 0.4 MG/WEEK
     Route: 062
  2. FUROSEMIDE [Suspect]
     Indication: HYPERTENSION
  3. ATENOLOL [Suspect]
     Indication: HYPERTENSION
  4. VERAPAMIL [Suspect]
     Indication: HYPERTENSION
  5. IRBESARTAN [Suspect]
     Indication: HYPERTENSION
  6. METOLAZONE [Suspect]
     Indication: HYPERTENSION
  7. TERAZOSIN HCL [Concomitant]
  8. INSULIN [Concomitant]
     Indication: DIABETES MELLITUS NON-INSULIN-DEPENDENT
  9. NAPROXEN [Concomitant]
  10. POTASSIUM CHLORIDE [Concomitant]
     Dosage: 20 MEQ
  11. OTHER DRUGS [Concomitant]

REACTIONS (9)
  - ANGINA PECTORIS [None]
  - ASTHENIA [None]
  - HYPERHIDROSIS [None]
  - OEDEMA [None]
  - ORTHOPNOEA [None]
  - SINUS BRADYCARDIA [None]
  - SYNCOPE [None]
  - URINE OUTPUT DECREASED [None]
  - WEIGHT INCREASED [None]
